FAERS Safety Report 7039820-6 (Version None)
Quarter: 2010Q4

REPORT INFORMATION
  Report Type: 
  Country: None (occurrence: None)
  Receive Date: 20101012
  Receipt Date: 20101007
  Transmission Date: 20110411
  Serious: Yes (Life-Threatening, Disabling, Other)
  Sender: FDA-Public Use
  Company Number: US-MERCK-1010USA00846

PATIENT
  Age: 11 Year
  Sex: Female

DRUGS (2)
  1. SINGULAIR [Suspect]
     Indication: ASTHMA
     Route: 048
     Dates: start: 20050101, end: 20100430
  2. EPINEPHRINE [Concomitant]
     Route: 065

REACTIONS (4)
  - ANAPHYLACTIC REACTION [None]
  - HEPATIC STEATOSIS [None]
  - RASH [None]
  - VULVOVAGINITIS [None]
